FAERS Safety Report 7443877-8 (Version None)
Quarter: 2011Q2

REPORT INFORMATION
  Report Type: 
  Country: None (occurrence: None)
  Receive Date: 20110428
  Receipt Date: 20110418
  Transmission Date: 20111010
  Serious: Yes (Hospitalization)
  Sender: FDA-Public Use
  Company Number: IT-BAYER-2011-031489

PATIENT
  Age: 77 Year
  Sex: Male

DRUGS (9)
  1. LANSOPRAZOLE [Concomitant]
     Dosage: DAILY DOSE 150 MG
     Route: 048
  2. ASPIRIN [Concomitant]
     Dosage: UNK
     Route: 048
  3. FOLINA [Concomitant]
     Dosage: DAILY DOSE 5 MG
     Route: 048
  4. NICARDAL [Concomitant]
     Dosage: DAILY DOSE 20 MG
     Route: 048
  5. ALLOPURINOL [Concomitant]
     Dosage: DAILY DOSE 300 MG
     Route: 048
  6. REPAGLINIDE [Concomitant]
     Dosage: DAILY DOSE 4 MG
     Route: 048
  7. OMNIC [Concomitant]
     Dosage: DAILY DOSE .4 MG
     Route: 048
  8. HUMALOG [Concomitant]
     Dosage: UNK
     Route: 058
  9. CIPROXIN 500 MG FILM-COATED TABLETS [Suspect]
     Indication: OEDEMA PERIPHERAL
     Dosage: 500 MG, QD
     Route: 048
     Dates: start: 20110330, end: 20110402

REACTIONS (4)
  - APRAXIA [None]
  - SENSORIMOTOR DISORDER [None]
  - DYSSTASIA [None]
  - DISORIENTATION [None]
